FAERS Safety Report 8615404-0 (Version None)
Quarter: 2012Q3

REPORT INFORMATION
  Report Type: 
  Country: None (occurrence: None)
  Receive Date: 20120823
  Receipt Date: 20120814
  Transmission Date: 20120928
  Serious: Yes (Other)
  Sender: FDA-Public Use
  Company Number: CA-JNJFOC-20120808194

PATIENT
  Sex: Female
  Weight: 86 kg

DRUGS (6)
  1. ARAVA [Concomitant]
     Route: 048
  2. REMICADE [Suspect]
     Indication: RHEUMATOID ARTHRITIS
     Route: 042
     Dates: start: 20090501, end: 20120701
  3. PREDNISONE TAB [Concomitant]
     Route: 048
  4. METHOTREXATE [Concomitant]
     Route: 048
  5. PLAQUENIL [Concomitant]
     Route: 048
  6. NAPROSYN [Concomitant]
     Dosage: DOSE: 375 UNITS UNSPECIFIED
     Route: 048

REACTIONS (1)
  - CARDIAC DISORDER [None]
